FAERS Safety Report 6980770-9 (Version None)
Quarter: 2010Q3

REPORT INFORMATION
  Report Type: 
  Country: None (occurrence: None)
  Receive Date: 20100910
  Receipt Date: 20100910
  Transmission Date: 20110219
  Serious: No
  Sender: FDA-Public Use
  Company Number: None

PATIENT
  Age: 37 Year
  Sex: Female
  Weight: 62.5964 kg

DRUGS (1)
  1. VENLAFAXINE [Suspect]
     Dosage: EFFEXOR XR GENERIC 75 MG DAY PO
     Route: 048
     Dates: start: 20100701, end: 20100801

REACTIONS (3)
  - ANXIETY [None]
  - DEPRESSION [None]
  - PRODUCT SUBSTITUTION ISSUE [None]
